FAERS Safety Report 7054061-4 (Version None)
Quarter: 2010Q4

REPORT INFORMATION
  Report Type: 
  Country: None (occurrence: None)
  Receive Date: 20101014
  Receipt Date: 20100929
  Transmission Date: 20110411
  Serious: Yes (Hospitalization)
  Sender: FDA-Public Use
  Company Number: 2010S1000750

PATIENT
  Age: 82 Year

DRUGS (9)
  1. LIVALO [Suspect]
     Indication: HYPERCHOLESTEROLAEMIA
     Dosage: 1 MG;1X;PO
     Route: 048
     Dates: start: 20100219, end: 20100601
  2. NORVASC [Concomitant]
  3. BISOPROLOL [Concomitant]
  4. FUMARATE [Concomitant]
  5. FURSULTIAMINE [Concomitant]
  6. TAURINE [Concomitant]
  7. EPADEL-S [Concomitant]
  8. MAGMITT [Concomitant]
  9. CHINESE HERBAL MEDICINE [Concomitant]

REACTIONS (3)
  - NEPHROSCLEROSIS [None]
  - TUBULOINTERSTITIAL NEPHRITIS [None]
  - VASCULITIS [None]
